FAERS Safety Report 25844201 (Version 1)
Quarter: 2025Q3

REPORT INFORMATION
  Report Type: Spontaneous
  Country: US (occurrence: US)
  Receive Date: 20250925
  Receipt Date: 20250925
  Transmission Date: 20251021
  Serious: No
  Sender: AUROBINDO
  Company Number: US-AUROBINDO-AUR-APL-2024-049688

PATIENT
  Age: 13 Year
  Sex: Male

DRUGS (1)
  1. MONTELUKAST SODIUM [Suspect]
     Active Substance: MONTELUKAST SODIUM
     Indication: Product used for unknown indication
     Route: 048
     Dates: start: 20240903

REACTIONS (3)
  - Product taste abnormal [Unknown]
  - Product after taste [Unknown]
  - Product colour issue [Unknown]

NARRATIVE: CASE EVENT DATE: 20241002
